FAERS Safety Report 5649508-1 (Version None)
Quarter: 2008Q1

REPORT INFORMATION
  Report Type: 
  Country: None (occurrence: None)
  Receive Date: 20080304
  Receipt Date: 20080225
  Transmission Date: 20080703
  Serious: Yes (Other)
  Sender: FDA-Public Use
  Company Number: US-PFIZER INC-2008017465

PATIENT
  Sex: Male
  Weight: 145.45 kg

DRUGS (4)
  1. LIPITOR [Suspect]
     Indication: BLOOD CHOLESTEROL
     Route: 048
     Dates: start: 20000101, end: 20071101
  2. PLAVIX [Concomitant]
     Route: 048
  3. FOLIC ACID [Concomitant]
     Route: 048
  4. FUROSEMIDE [Concomitant]
     Route: 048

REACTIONS (4)
  - ASTHENIA [None]
  - DIZZINESS [None]
  - ILL-DEFINED DISORDER [None]
  - NERVOUSNESS [None]
